FAERS Safety Report 9344375 (Version 2)
Quarter: 2013Q3

REPORT INFORMATION
  Report Type: Spontaneous
  Country: FR (occurrence: FR)
  Receive Date: 20130612
  Receipt Date: 20130708
  Transmission Date: 20140515
  Serious: Yes (Death, Life-Threatening, Hospitalization)
  Sender: FDA-Public Use
  Company Number: FR-ALLERGAN-1308390US

PATIENT
  Age: 76 Year
  Sex: Male

DRUGS (11)
  1. GANFORT [Suspect]
     Indication: PRODUCT USED FOR UNKNOWN INDICATION
  2. PREVISCAN [Suspect]
     Indication: PRODUCT USED FOR UNKNOWN INDICATION
     Dosage: UNK
     Dates: start: 201301, end: 20130131
  3. LOVENOX [Suspect]
     Indication: PRODUCT USED FOR UNKNOWN INDICATION
     Dosage: 0.8 ML, BID
     Route: 058
     Dates: start: 201301, end: 20130131
  4. HEMIGOXINE NATIVELLE [Suspect]
     Indication: PRODUCT USED FOR UNKNOWN INDICATION
     Dosage: 1 DF, QD
     Route: 048
     Dates: end: 20130131
  5. SIMVASTATINE [Suspect]
     Indication: PRODUCT USED FOR UNKNOWN INDICATION
     Dosage: 20 MG, QD
     Route: 048
     Dates: end: 20130131
  6. BISOPROLOL [Suspect]
     Indication: PRODUCT USED FOR UNKNOWN INDICATION
     Dosage: 5 MG, QD
     Route: 048
     Dates: end: 20130131
  7. APROVEL [Suspect]
     Indication: PRODUCT USED FOR UNKNOWN INDICATION
     Dosage: 150 MG, QD
     Route: 048
     Dates: end: 20130531
  8. METFORMINE [Suspect]
     Indication: PRODUCT USED FOR UNKNOWN INDICATION
     Dosage: 850 MG, BID
     Route: 048
     Dates: end: 20130131
  9. INEXIUM [Suspect]
     Indication: PRODUCT USED FOR UNKNOWN INDICATION
  10. KARDEGIC [Suspect]
     Indication: NERVOUS SYSTEM DISORDER
     Dosage: 75 MG, UNK
     Dates: start: 20130118, end: 20130131
  11. LOVENOX [Suspect]
     Indication: ANTICOAGULANT THERAPY
     Dosage: 0.8 ML, BID
     Route: 058
     Dates: end: 20130131

REACTIONS (6)
  - Cerebrovascular accident [Fatal]
  - Overdose [Unknown]
  - Anaemia [Unknown]
  - Cerebrovascular accident [Recovering/Resolving]
  - International normalised ratio increased [Recovered/Resolved]
  - Haematoma [Unknown]
